FAERS Safety Report 7485439-2 (Version None)
Quarter: 2011Q2

REPORT INFORMATION
  Report Type: 
  Country: None (occurrence: None)
  Receive Date: 20110517
  Receipt Date: 20110510
  Transmission Date: 20111010
  Serious: Yes (Other)
  Sender: FDA-Public Use
  Company Number: CA-US-EMD SERONO, INC.-7059210

PATIENT
  Sex: Male

DRUGS (10)
  1. REBIF [Suspect]
     Indication: RELAPSING-REMITTING MULTIPLE SCLEROSIS
     Dates: start: 20040805
  2. GABAPENTINE [Concomitant]
  3. CHAMPEX [Concomitant]
     Indication: EX-TOBACCO USER
  4. VITAMIN B-12 [Concomitant]
  5. AVANDEMET [Concomitant]
  6. AMYTRIPTYLINE [Concomitant]
  7. MULTI-VITAMIN [Concomitant]
  8. VITAMIN D [Concomitant]
  9. RAMIPRIL [Concomitant]
  10. ASPIRIN [Concomitant]

REACTIONS (1)
  - ENTEROCOLITIS HAEMORRHAGIC [None]
